FAERS Safety Report 5128174-8 (Version None)
Quarter: 2006Q4

REPORT INFORMATION
  Report Type: 
  Country: None (occurrence: None)
  Receive Date: 20061011
  Receipt Date: 20060926
  Transmission Date: 20070319
  Serious: Yes (Hospitalization, Other)
  Sender: FDA-Public Use
  Company Number: 2006AL002965

PATIENT
  Age: 78 Year
  Sex: Female

DRUGS (6)
  1. CITALOPRAM HYDROBROMIDE [Suspect]
     Indication: DEPRESSION
     Dosage: 20 MG' QD' PO
     Route: 048
     Dates: start: 20060512
  2. CLOPIDOGREL [Concomitant]
  3. ACETAMINOPHEN W/ CODEINE [Concomitant]
  4. IRON [Concomitant]
  5. LANSOPRAZOLE [Concomitant]
  6. SALBUTAMOL [Concomitant]

REACTIONS (4)
  - BLOOD PRESSURE DECREASED [None]
  - GASTROINTESTINAL HAEMORRHAGE [None]
  - HAEMATEMESIS [None]
  - HAEMOGLOBIN DECREASED [None]
